FAERS Safety Report 15328631 (Version 1)
Quarter: 2018Q4

REPORT INFORMATION
  Report Type: Spontaneous
  Country: US (occurrence: US)
  Receive Date: 20180829
  Receipt Date: 20180829
  Transmission Date: 20190204
  Serious: Yes (Hospitalization)
  Sender: FDA-Public Use
  Company Number: US-STRIDES ARCOLAB LIMITED-2018SP007143

PATIENT

DRUGS (3)
  1. MELOXICAM. [Suspect]
     Active Substance: MELOXICAM
     Indication: OSTEOARTHRITIS
     Dosage: UNK
     Route: 065
  2. AMLODIPINE [Suspect]
     Active Substance: AMLODIPINE BESYLATE
     Indication: HYPERTENSION
     Dosage: UNK
     Route: 065
  3. MELOXICAM. [Suspect]
     Active Substance: MELOXICAM
     Indication: ARTHRALGIA
     Dosage: UNK
     Route: 065

REACTIONS (11)
  - Pyrexia [Recovered/Resolved]
  - Drug reaction with eosinophilia and systemic symptoms [Recovered/Resolved]
  - Tongue erythema [Recovered/Resolved]
  - Skin hyperpigmentation [Recovered/Resolved]
  - Papule [Recovered/Resolved]
  - Linear IgA disease [Recovered/Resolved]
  - Dermatitis bullous [Recovered/Resolved]
  - Blister [Recovered/Resolved]
  - Fatigue [Recovered/Resolved]
  - Oral mucosal erythema [Recovered/Resolved]
  - Oropharyngeal pain [Recovered/Resolved]
